FAERS Safety Report 8697711 (Version 2)
Quarter: 2012Q4

REPORT INFORMATION
  Report Type: 
  Country: US (occurrence: US)
  Receive Date: 20120801
  Receipt Date: 20121113
  Transmission Date: 20130627
  Serious: No
  Sender: FDA-Public Use
  Company Number: US-ASTRAZENECA-2012SE51381

PATIENT
  Age: 52 Year
  Sex: Female
  Weight: 103 kg

DRUGS (12)
  1. NEXIUM [Suspect]
     Route: 048
  2. NEXIUM [Suspect]
     Route: 048
  3. ZESTRIL [Suspect]
     Route: 048
  4. CRESTOR [Suspect]
     Route: 048
  5. BYSTOLIC [Concomitant]
     Route: 048
  6. LASIX [Concomitant]
     Indication: SWELLING
     Route: 048
  7. KLOR-CON [Concomitant]
     Indication: SWELLING
     Route: 048
  8. FISH OIL [Concomitant]
     Route: 048
  9. NEURONTIN [Concomitant]
     Route: 048
  10. LORATADINE [Concomitant]
     Route: 048
  11. GERITOL COMPLETE [Concomitant]
     Route: 048
  12. ECOTRIN LOW STRENGTH [Concomitant]
     Route: 048

REACTIONS (28)
  - Hiatus hernia [Unknown]
  - Gastritis erosive [Unknown]
  - Oesophagitis [Unknown]
  - Off label use [Unknown]
  - Barrett^s oesophagus [Unknown]
  - Dyspepsia [Unknown]
  - Abdominal pain upper [Unknown]
  - Abdominal distension [Unknown]
  - Back pain [Unknown]
  - Arthralgia [Unknown]
  - Muscle spasms [Unknown]
  - Dizziness [Unknown]
  - Memory impairment [Unknown]
  - Thinking abnormal [Unknown]
  - Adverse event [Unknown]
  - Depression [Unknown]
  - Blood cholesterol increased [Unknown]
  - Contusion [Unknown]
  - Haemorrhagic diathesis [Unknown]
  - Coronary artery disease [Unknown]
  - Chronic obstructive pulmonary disease [Unknown]
  - Fatigue [Unknown]
  - Asthenia [Unknown]
  - Hypoacusis [Unknown]
  - Oedema peripheral [Unknown]
  - Joint swelling [Unknown]
  - Dyspnoea [Unknown]
  - Abdominal pain upper [Unknown]
